FAERS Safety Report 9817159 (Version 3)
Quarter: 2014Q1

REPORT INFORMATION
  Report Type: Spontaneous
  Country: US (occurrence: US)
  Receive Date: 20140114
  Receipt Date: 20140203
  Transmission Date: 20141002
  Serious: Yes (Other)
  Sender: FDA-Public Use
  Company Number: US-GILEAD-2013-0080560

PATIENT
  Age: 24 Year
  Sex: Male
  Weight: 65.31 kg

DRUGS (3)
  1. STRIBILD [Suspect]
     Indication: PRODUCT USED FOR UNKNOWN INDICATION
     Dosage: 800 MG, QD
     Route: 048
     Dates: start: 201208
  2. VICODIN [Suspect]
     Indication: PRODUCT USED FOR UNKNOWN INDICATION
     Dosage: UNK
     Route: 065
     Dates: end: 20130729
  3. LAMICTAL [Concomitant]
     Dosage: 150 MG, QD
     Route: 048

REACTIONS (4)
  - Viral load increased [Unknown]
  - Product label on wrong product [Unknown]
  - Product quality issue [Unknown]
  - Medication error [Recovered/Resolved]
